FAERS Safety Report 23444001 (Version 1)
Quarter: 2024Q1

REPORT INFORMATION
  Report Type: Spontaneous
  Country: FR (occurrence: FR)
  Receive Date: 20240125
  Receipt Date: 20240125
  Transmission Date: 20240410
  Serious: Yes (Life-Threatening, Hospitalization)
  Sender: FDA-Public Use
  Company Number: None

PATIENT
  Age: 72 Year
  Sex: Male
  Weight: 90 kg

DRUGS (3)
  1. CARBOPLATIN [Suspect]
     Active Substance: CARBOPLATIN
     Indication: Lung adenocarcinoma
     Dosage: C1J1
     Route: 042
     Dates: start: 20231130, end: 20231130
  2. CARBOPLATIN [Suspect]
     Active Substance: CARBOPLATIN
     Dosage: C2J1
     Route: 042
     Dates: start: 20231221, end: 20231221
  3. ALIMTA [Suspect]
     Active Substance: PEMETREXED DISODIUM
     Indication: Lung adenocarcinoma
     Dosage: C1J1, C2J1
     Route: 042
     Dates: start: 20231130, end: 20231221

REACTIONS (2)
  - Arteriospasm coronary [Recovered/Resolved]
  - Acute coronary syndrome [Recovered/Resolved with Sequelae]

NARRATIVE: CASE EVENT DATE: 20231221
